FAERS Safety Report 24430878 (Version 2)
Quarter: 2024Q4

REPORT INFORMATION
  Report Type: Spontaneous
  Country: US (occurrence: US)
  Receive Date: 20241014
  Receipt Date: 20241030
  Transmission Date: 20250115
  Serious: Yes (Hospitalization, Other)
  Sender: ACCORD
  Company Number: US-Accord-449980

PATIENT
  Age: 54 Year
  Sex: Female
  Weight: 99.3 kg

DRUGS (21)
  1. ETOPOSIDE [Suspect]
     Active Substance: ETOPOSIDE
     Indication: Small cell lung cancer extensive stage
     Dosage: FROM DAY ONE TO DAY THREE OF EACH CYCLE, ONCE DAILY, Q3W
     Route: 042
     Dates: start: 20240115, end: 20240403
  2. CARBOPLATIN [Concomitant]
     Active Substance: CARBOPLATIN
     Indication: Small cell lung cancer extensive stage
     Dosage: Q3W
     Route: 042
     Dates: start: 20240114, end: 20240401
  3. ALBUTEROL [Concomitant]
     Active Substance: ALBUTEROL
     Indication: Wheezing
     Dosage: 108 (90 BASE) MCG/ACT INHALER, 2 PUFFS, INHALATION, ONCE EVERY 6 HOURS (Q6H) AS NEEDED (PRN)
     Dates: start: 20231222
  4. LEXAPRO [Concomitant]
     Active Substance: ESCITALOPRAM OXALATE
     Indication: Anxiety
     Dosage: 20 MG, PO, DAILY
     Dates: start: 20231228
  5. OXYCODONE HYDROCHLORIDE [Concomitant]
     Active Substance: OXYCODONE HYDROCHLORIDE
     Indication: Pain
     Dosage: 5 MG (1-2 TABLETS), PO, Q6H PRN
     Dates: start: 20231228
  6. ZOFRAN [Concomitant]
     Active Substance: ONDANSETRON HYDROCHLORIDE
     Indication: Nausea
     Dosage: 8 MG, PO, ONCE EVERY 8 HOURS (Q8H) PRN
     Dates: start: 20240109
  7. COMPAZINE [Concomitant]
     Active Substance: PROCHLORPERAZINE MALEATE
     Indication: Nausea
     Dosage: 10 MG, PO, Q6H PRN
     Dates: start: 20240109
  8. VIBEGRON [Concomitant]
     Active Substance: VIBEGRON
     Indication: Urinary incontinence
     Dosage: 75 MG, PO, DAILY
     Dates: start: 20240109
  9. IBUPROFEN [Concomitant]
     Active Substance: IBUPROFEN
     Indication: Arthritis
     Dosage: 600 MG, PO, PRN
     Dates: start: 2016
  10. ELIQUIS [Concomitant]
     Active Substance: APIXABAN
     Indication: Pulmonary embolism
     Dosage: 5 MG, PO, BID
     Dates: start: 20240121
  11. DULERA [Concomitant]
     Active Substance: FORMOTEROL FUMARATE DIHYDRATE\MOMETASONE FUROATE
     Indication: Dyspnoea
     Dosage: 2  PUFFS, INHALATION, BID
     Dates: start: 20240121
  12. GABAPENTIN [Concomitant]
     Active Substance: GABAPENTIN
     Indication: Pain
     Dosage: 300 MG, PO, BID
     Dates: start: 20240122
  13. MIRALAX [Concomitant]
     Active Substance: POLYETHYLENE GLYCOL 3350
     Dosage: 17 G, PO, DAILY PRN
     Dates: start: 20240122
  14. NICOTINE [Concomitant]
     Active Substance: NICOTINE
     Indication: Smoking cessation therapy
     Dosage: 4 MG, PO, Q6H PRN
     Dates: start: 20240124
  15. COMMIT [Concomitant]
     Active Substance: NICOTINE
     Indication: Smoking cessation therapy
     Dosage: 4 MG, PO, ONCE EVERY 2 HOURS (Q2H) PRN
     Dates: start: 20240124
  16. PEGFILGRASTIM [Concomitant]
     Active Substance: PEGFILGRASTIM
     Indication: Neutrophil count decreased
     Dosage: AFTER EACH CYCLE OF CHEMOTHERAPY
     Route: 058
     Dates: start: 20240215
  17. DEXAMETHASONE [Concomitant]
     Active Substance: DEXAMETHASONE
     Indication: Chemotherapy side effect prophylaxis
     Dosage: 12 MG (BEFORE DAY 1), 8 MG (DAY 2-3), PIGGYBAG (IVPB), BEFORE EACH CYCLE OF CHEMOTHERAPY
     Route: 042
     Dates: start: 20240115
  18. ALOXI [Concomitant]
     Active Substance: PALONOSETRON HYDROCHLORIDE
     Indication: Chemotherapy side effect prophylaxis
     Dosage: 0.25 MG, IV, BEFORE DAY 1 OF EACH CYCLE OF CHEMOTHERAPY
     Route: 042
     Dates: start: 20240115
  19. EMEND [Concomitant]
     Active Substance: APREPITANT
     Indication: Chemotherapy side effect prophylaxis
     Dosage: 150 MG, IVPB, BEFORE DAY 1 OF EACH CYCLE OF CHEMOTHERAPY
     Dates: start: 20240115
  20. ATIVAN [Concomitant]
     Active Substance: LORAZEPAM
     Indication: Chemotherapy side effect prophylaxis
     Dosage: 0.5 MG, BEFORE DAY 1 OF EACH CYCLE OF CHEMOTHERAPY
     Route: 042
     Dates: start: 20240115
  21. PREDNISONE [Concomitant]
     Active Substance: PREDNISONE
     Indication: Cancer pain
     Dosage: 10 MG, PO, DAILY,
     Dates: start: 20240903, end: 20240910

REACTIONS (2)
  - Dizziness [Recovering/Resolving]
  - Hypertension [Recovered/Resolved]

NARRATIVE: CASE EVENT DATE: 20240917
